FAERS Safety Report 10591716 (Version 1)
Quarter: 2014Q4

REPORT INFORMATION
  Report Type: Other
  Country: IT (occurrence: IT)
  Receive Date: 20141118
  Receipt Date: 20141118
  Transmission Date: 20150529
  Serious: Yes (Hospitalization)
  Sender: FDA-Public Use
  Company Number: IT-MYLANLABS-2014M1010327

PATIENT

DRUGS (7)
  1. NIFEDIPINA DOC [Concomitant]
     Indication: PRODUCT USED FOR UNKNOWN INDICATION
  2. CLEXANE [Concomitant]
     Active Substance: ENOXAPARIN SODIUM
     Indication: PRODUCT USED FOR UNKNOWN INDICATION
  3. PLAVIX [Concomitant]
     Active Substance: CLOPIDOGREL BISULFATE
     Indication: PRODUCT USED FOR UNKNOWN INDICATION
  4. BACLOFENE MYLAN GENERICS [Suspect]
     Active Substance: BACLOFEN
     Indication: MYALGIA
     Dosage: 1 DF DAILY
     Route: 048
     Dates: start: 20140901, end: 20141003
  5. IBUPROFENE ACTAVIS [Concomitant]
     Indication: PRODUCT USED FOR UNKNOWN INDICATION
  6. ACIDO FOLICO GENERIS [Concomitant]
     Indication: PRODUCT USED FOR UNKNOWN INDICATION
  7. HYDROMORPHONE HYDROCHLORIDE. [Suspect]
     Active Substance: HYDROMORPHONE HYDROCHLORIDE
     Indication: POLYARTHRITIS
     Dosage: 2 DF DAILY
     Route: 048
     Dates: start: 20140901, end: 20141003

REACTIONS (4)
  - Respiratory failure [Unknown]
  - Asthenia [Unknown]
  - Somnolence [Unknown]
  - Iatrogenic injury [None]

NARRATIVE: CASE EVENT DATE: 20141003
